FAERS Safety Report 10224447 (Version 2)
Quarter: 2014Q2

REPORT INFORMATION
  Report Type: Spontaneous
  Country: JP (occurrence: JP)
  Receive Date: 20140609
  Receipt Date: 20140612
  Transmission Date: 20141212
  Serious: Yes (Other)
  Sender: FDA-Public Use
  Company Number: JP-ASTRAZENECA-2014SE38725

PATIENT
  Age: 80 Year
  Sex: Female

DRUGS (2)
  1. ULTIVA [Suspect]
     Dosage: DOSE UNKNOWN
     Route: 065
     Dates: start: 20140530
  2. PROPOFOL (NON-AZ DRUG) [Suspect]
     Dosage: GENERIC
     Route: 042
     Dates: start: 20140530, end: 20140530

REACTIONS (1)
  - Infusion site vesicles [Not Recovered/Not Resolved]
